FAERS Safety Report 6575829-4 (Version None)
Quarter: 2010Q1

REPORT INFORMATION
  Report Type: 
  Country: None (occurrence: None)
  Receive Date: 20100209
  Receipt Date: 20100120
  Transmission Date: 20100710
  Serious: Yes (Other)
  Sender: FDA-Public Use
  Company Number: US-BAYER-201011098BCC

PATIENT
  Age: 77 Year
  Sex: Female
  Weight: 77 kg

DRUGS (7)
  1. EXTRA STRENGTH BAYER ASPIRIN QUICK RELEASE CRYSTALS STICK PACK [Suspect]
     Indication: ARTHRALGIA
     Dosage: UNIT DOSE: 1 DF
     Route: 048
     Dates: start: 20090101
  2. LOPRESSOR [Concomitant]
     Route: 065
  3. HYDROCHLOROTHIAZIDE [Concomitant]
     Route: 065
  4. ZETIA [Concomitant]
     Route: 065
  5. SYNTHROID [Concomitant]
     Route: 065
  6. ASPIRIN [Concomitant]
     Route: 065
  7. UNKNOWN FISH OIL WITH VITAMIN D [Concomitant]
     Route: 065

REACTIONS (5)
  - BURNING SENSATION [None]
  - GLOSSODYNIA [None]
  - PARAESTHESIA MUCOSAL [None]
  - PARAESTHESIA ORAL [None]
  - THROAT IRRITATION [None]
